FAERS Safety Report 19645899 (Version 3)
Quarter: 2021Q4

REPORT INFORMATION
  Report Type: Report from Study
  Country: US (occurrence: US)
  Receive Date: 20210802
  Receipt Date: 20211222
  Transmission Date: 20220303
  Serious: No
  Sender: FDA-Public Use
  Company Number: NVSC2021US170609

PATIENT
  Sex: Female

DRUGS (2)
  1. ILARIS [Suspect]
     Active Substance: CANAKINUMAB
     Indication: Still^s disease
     Dosage: 252 MG, Q4W
     Route: 058
     Dates: start: 20210604
  2. ILARIS [Suspect]
     Active Substance: CANAKINUMAB
     Route: 058

REACTIONS (1)
  - Drug ineffective [Unknown]
